FAERS Safety Report 18894084 (Version 16)
Quarter: 2025Q1

REPORT INFORMATION
  Report Type: Spontaneous
  Country: US (occurrence: US)
  Receive Date: 20210215
  Receipt Date: 20250108
  Transmission Date: 20250408
  Serious: Yes (Disabling, Other)
  Sender: PFIZER
  Company Number: US-PFIZER INC-2021121545

PATIENT
  Age: 68 Year
  Sex: Female
  Weight: 65.77 kg

DRUGS (3)
  1. PREMPRO [Suspect]
     Active Substance: ESTROGENS, CONJUGATED\MEDROXYPROGESTERONE ACETATE
     Indication: Hormone replacement therapy
  2. PREMPRO [Suspect]
     Active Substance: ESTROGENS, CONJUGATED\MEDROXYPROGESTERONE ACETATE
     Indication: Osteoporosis
  3. LOSARTAN [Concomitant]
     Active Substance: LOSARTAN

REACTIONS (14)
  - Skull fracture [Unknown]
  - Neoplasm malignant [Unknown]
  - Dysstasia [Unknown]
  - Foreign body in throat [Unknown]
  - Sleep disorder [Unknown]
  - Aphonia [Unknown]
  - Speech disorder [Unknown]
  - Throat tightness [Unknown]
  - Cardiac valve disease [Unknown]
  - Painful respiration [Unknown]
  - Dyspnoea [Unknown]
  - Tinnitus [Unknown]
  - Hypoacusis [Unknown]
  - Dysphagia [Unknown]

NARRATIVE: CASE EVENT DATE: 20200101
